FAERS Safety Report 24989073 (Version 1)
Quarter: 2025Q1

REPORT INFORMATION
  Report Type: Spontaneous
  Country: GB (occurrence: GB)
  Receive Date: 20250220
  Receipt Date: 20250220
  Transmission Date: 20250409
  Serious: Yes (Life-Threatening, Other)
  Sender: AUROBINDO
  Company Number: GB-MHRA-EMIS-6068-1a6b5a6b-80e4-4859-83a4-ed9478c5b178

PATIENT
  Age: 68 Year
  Sex: Male
  Weight: 111 kg

DRUGS (6)
  1. FINASTERIDE [Suspect]
     Active Substance: FINASTERIDE
     Indication: Product used for unknown indication
     Dosage: 1 DOSAGE FORM, ONCE A DAY, ONE TO BE TAKEN EACH DAY
     Route: 065
     Dates: start: 20241217
  2. EZETIMIBE [Concomitant]
     Active Substance: EZETIMIBE
     Indication: Product used for unknown indication
     Dosage: 1 DOSAGE FORM, ONCE A DAY, ONE TO BE TAKEN EACH DAY
     Route: 065
     Dates: start: 20241217
  3. CLOTRIMAZOLE [Concomitant]
     Active Substance: CLOTRIMAZOLE
     Indication: Product used for unknown indication
     Dosage: 50 GRAM,APPLY TWICE A DAY
     Route: 065
     Dates: start: 20241217
  4. CHLORHEXIDINE HYDROCHLORIDE\NEOMYCIN SULFATE [Concomitant]
     Active Substance: CHLORHEXIDINE HYDROCHLORIDE\NEOMYCIN SULFATE
     Indication: Essential hypertension
     Dosage: 15 GRAM, FOUR TIMES/DAY, APPLY TO NOSTRILS FOUR TIMES A DAY FOR 10 DAYS
     Route: 065
     Dates: start: 20250106
  5. DIBUCAINE HYDROCHLORIDE\PREDNISOLONE [Concomitant]
     Active Substance: DIBUCAINE HYDROCHLORIDE\PREDNISOLONE
     Indication: Essential hypertension
     Dosage: 1 DOSAGE FORM, ONCE A DAY, INSERT ONE SUPPOSITORY INTO THE RECTUM DAILY AFTER A BOWEL MOVEMENT
     Route: 065
     Dates: start: 20250106
  6. EUMOVATE [Concomitant]
     Active Substance: CLOBETASONE BUTYRATE
     Indication: Essential hypertension
     Dosage: 30 GRAM, APPLY THINLY TWICE A DAY FOR 2 WEEKS
     Route: 065
     Dates: start: 20250106

REACTIONS (1)
  - Suicidal ideation [Recovered/Resolved with Sequelae]
